FAERS Safety Report 9202605 (Version 1)
Quarter: 2013Q2

REPORT INFORMATION
  Report Type: Spontaneous
  Country: US (occurrence: US)
  Receive Date: 20130401
  Receipt Date: 20130401
  Transmission Date: 20140414
  Serious: Yes (Death)
  Sender: FDA-Public Use
  Company Number: US-ASTRAZENECA-2013SE20829

PATIENT
  Age: 626 Day
  Sex: Male

DRUGS (1)
  1. SYNAGIS [Suspect]
     Dosage: 100 MG/ML, FREQUENCY: 15 MG/KG ONCE A MONTH
     Route: 030
     Dates: start: 20121121

REACTIONS (1)
  - Death [Fatal]
